FAERS Safety Report 18745632 (Version 7)
Quarter: 2021Q2

REPORT INFORMATION
  Report Type: Report from Study
  Country: CO (occurrence: CO)
  Receive Date: 20210115
  Receipt Date: 20210529
  Transmission Date: 20210717
  Serious: Yes (Other)
  Sender: FDA-Public Use
  Company Number: NVSC2020CO343761

PATIENT
  Sex: Female

DRUGS (4)
  1. KISQALI [Suspect]
     Active Substance: RIBOCICLIB
     Dosage: 400 MG, QD
     Route: 048
  2. FEMARA [Suspect]
     Active Substance: LETROZOLE
     Dosage: UNK
     Route: 048
  3. KISQALI [Suspect]
     Active Substance: RIBOCICLIB
     Indication: BREAST CANCER METASTATIC
     Dosage: 600 MG, QD
     Route: 048
  4. FEMARA [Suspect]
     Active Substance: LETROZOLE
     Indication: BREAST CANCER
     Dosage: 2.5 MG, QD
     Route: 048

REACTIONS (45)
  - Neutropenia [Unknown]
  - Pain [Unknown]
  - Burning sensation [Unknown]
  - Urticaria [Recovering/Resolving]
  - Dermatitis acneiform [Unknown]
  - Chondropathy [Unknown]
  - Pyrexia [Unknown]
  - Eyelash changes [Unknown]
  - Discouragement [Unknown]
  - Elbow deformity [Unknown]
  - Metastases to spine [Unknown]
  - Throat irritation [Unknown]
  - Nipple disorder [Unknown]
  - Haemoglobin decreased [Unknown]
  - White blood cell count decreased [Unknown]
  - Pruritus [Recovering/Resolving]
  - Frustration tolerance decreased [Unknown]
  - Weight increased [Unknown]
  - Eczema [Unknown]
  - Madarosis [Unknown]
  - Immunodeficiency [Unknown]
  - Limb discomfort [Unknown]
  - Eye disorder [Unknown]
  - Lymphocyte count decreased [Unknown]
  - Rash [Unknown]
  - Tremor [Unknown]
  - Skin exfoliation [Unknown]
  - Hypersensitivity [Unknown]
  - Influenza [Recovering/Resolving]
  - Acarodermatitis [Unknown]
  - Haematoma [Unknown]
  - Inflammation [Unknown]
  - Rheumatic disorder [Unknown]
  - Malaise [Unknown]
  - Osteoarthritis [Unknown]
  - Migraine [Unknown]
  - Synovial cyst [Unknown]
  - Haemorrhoids [Unknown]
  - Eye swelling [Unknown]
  - Laryngitis [Unknown]
  - Headache [Unknown]
  - Arthralgia [Unknown]
  - Spinal disorder [Unknown]
  - Sensitisation [Unknown]
  - Cough [Unknown]
